FAERS Safety Report 18479894 (Version 5)
Quarter: 2020Q4

REPORT INFORMATION
  Report Type: Report from Study
  Country: BR (occurrence: BR)
  Receive Date: 20201109
  Receipt Date: 20201211
  Transmission Date: 20210114
  Serious: Yes (Other)
  Sender: FDA-Public Use
  Company Number: BR-EMD SERONO-9193832

PATIENT
  Age: 48 Year
  Sex: Female

DRUGS (4)
  1. MAVENCLAD [Suspect]
     Active Substance: CLADRIBINE
     Indication: MULTIPLE SCLEROSIS
     Dosage: Y1M1: TWO TABLETS ON DAYS 1 TO 3 AND ONE TABLET ON DAYS 4 AND 5. DAY 5 DOSE TAKEN LATE.
     Route: 048
     Dates: start: 20201019
  2. MAVENCLAD [Suspect]
     Active Substance: CLADRIBINE
     Dosage: Y1 M2: 2 TAB ON DAYS 1 TO 2 AND ONE TAB ON DAYS 3 TO 5 FROM
     Route: 048
     Dates: start: 20201118
  3. DULOXETINE. [Concomitant]
     Active Substance: DULOXETINE
     Indication: STRESS
     Dosage: 20MG ONCE DAILY IN MORNING
  4. DULOXETINE. [Concomitant]
     Active Substance: DULOXETINE
     Indication: GAIT DISTURBANCE

REACTIONS (11)
  - Fatigue [Not Recovered/Not Resolved]
  - Fungal infection [Recovering/Resolving]
  - Headache [Not Recovered/Not Resolved]
  - Leukopenia [Not Recovered/Not Resolved]
  - Dyspnoea [Not Recovered/Not Resolved]
  - Back pain [Not Recovered/Not Resolved]
  - Asthenia [Not Recovered/Not Resolved]
  - Muscular weakness [Not Recovered/Not Resolved]
  - Alopecia [Not Recovered/Not Resolved]
  - Discomfort [Recovered/Resolved]
  - Toothache [Not Recovered/Not Resolved]

NARRATIVE: CASE EVENT DATE: 20201019
